FAERS Safety Report 20359246 (Version 2)
Quarter: 2022Q1

REPORT INFORMATION
  Report Type: Spontaneous
  Country: IN (occurrence: IN)
  Receive Date: 20220121
  Receipt Date: 20220205
  Transmission Date: 20220423
  Serious: Yes (Hospitalization, Other)
  Sender: FDA-Public Use
  Company Number: IN-HETERO-HET2022IN00049

PATIENT
  Age: 31 Year
  Sex: Male

DRUGS (1)
  1. PREGABALIN [Suspect]
     Active Substance: PREGABALIN
     Indication: Product used for unknown indication
     Dosage: 30 TABLETS OF 75 MG PREGABALIN DAILY, 2250 MG/DAY
     Route: 065

REACTIONS (2)
  - Encephalopathy [Recovered/Resolved]
  - Drug abuse [Unknown]
